FAERS Safety Report 20482162 (Version 3)
Quarter: 2022Q1

REPORT INFORMATION
  Report Type: Report from Study
  Country: GR (occurrence: GR)
  Receive Date: 20220216
  Receipt Date: 20220310
  Transmission Date: 20220423
  Serious: Yes (Death, Hospitalization)
  Sender: FDA-Public Use
  Company Number: GR-ABBVIE-21K-066-4158418-00

PATIENT
  Sex: Female
  Weight: 70 kg

DRUGS (6)
  1. CARBIDOPA\LEVODOPA [Suspect]
     Active Substance: CARBIDOPA\LEVODOPA
     Indication: Parkinson^s disease
     Dosage: MD 7.9 ML; CONTINUOUS RATE: 3.0 ML/H; EXTRA DOSE: 1.5 ML
     Route: 050
     Dates: start: 20211007, end: 2021
  2. CARBIDOPA\LEVODOPA [Suspect]
     Active Substance: CARBIDOPA\LEVODOPA
     Dosage: MD 7.9 ML; CONTINUOUS RATE: 3.2 ML/H; EXTRA DOSE: 1.8 ML
     Route: 050
     Dates: start: 2021
  3. CARBIDOPA\LEVODOPA [Suspect]
     Active Substance: CARBIDOPA\LEVODOPA
     Dosage: MORNING DOSE: 7.9ML; CONTINUOUS RATE: 3.2ML/H; EXTRA DOSE:?1.2ML
     Route: 050
  4. CARBIDOPA\LEVODOPA [Suspect]
     Active Substance: CARBIDOPA\LEVODOPA
     Route: 050
  5. RABEPRAZOLE SODIUM [Concomitant]
     Active Substance: RABEPRAZOLE SODIUM
     Indication: Product used for unknown indication
     Route: 048
  6. PRAMIPEXOLE [Concomitant]
     Active Substance: PRAMIPEXOLE
     Indication: Parkinson^s disease
     Route: 048

REACTIONS (13)
  - Pneumonia aspiration [Fatal]
  - Anaemia [Unknown]
  - Feeding disorder [Not Recovered/Not Resolved]
  - Hypophagia [Recovering/Resolving]
  - Dysarthria [Not Recovered/Not Resolved]
  - Peripheral swelling [Not Recovered/Not Resolved]
  - Oral discomfort [Not Recovered/Not Resolved]
  - Choking [Unknown]
  - Dysphonia [Not Recovered/Not Resolved]
  - Dysphagia [Recovered/Resolved]
  - Stoma site erythema [Recovered/Resolved]
  - Dysphagia [Recovering/Resolving]
  - Stoma complication [Not Recovered/Not Resolved]
